FAERS Safety Report 5860432-1 (Version None)
Quarter: 2008Q3

REPORT INFORMATION
  Report Type: 
  Country: None (occurrence: None)
  Receive Date: 20080827
  Receipt Date: 20080821
  Transmission Date: 20090109
  Serious: No
  Sender: FDA-Public Use
  Company Number: US-BOEHRINGER INGELHEIM GMBH, GERMANY-2008-BP-13213BP

PATIENT
  Age: 67 Year
  Sex: Female

DRUGS (2)
  1. MIRAPEX [Suspect]
     Indication: PARKINSON'S DISEASE
     Route: 048
     Dates: start: 20080817
  2. SINEMET [Concomitant]
     Indication: PARKINSON'S DISEASE

REACTIONS (2)
  - ASTHENIA [None]
  - PAIN IN EXTREMITY [None]
